FAERS Safety Report 24207109 (Version 1)
Quarter: 2024Q3

REPORT INFORMATION
  Report Type: Spontaneous
  Country: US (occurrence: US)
  Receive Date: 20240813
  Receipt Date: 20240813
  Transmission Date: 20241017
  Serious: No
  Sender: BAUSCH AND LOMB
  Company Number: US-BAUSCHBL-2024BNL031123

PATIENT
  Sex: Female

DRUGS (2)
  1. VYZULTA [Suspect]
     Active Substance: LATANOPROSTENE BUNOD
     Indication: Glaucoma
     Route: 047
     Dates: start: 20240730
  2. BRINZOLAMIDE [Concomitant]
     Active Substance: BRINZOLAMIDE
     Indication: Product used for unknown indication

REACTIONS (3)
  - Head discomfort [Unknown]
  - Ill-defined disorder [Unknown]
  - Eye pain [Unknown]

NARRATIVE: CASE EVENT DATE: 20240730
